FAERS Safety Report 4310071-9 (Version None)
Quarter: 2004Q1

REPORT INFORMATION
  Report Type: 
  Country: None (occurrence: None)
  Receive Date: 20040301
  Receipt Date: 20031107
  Transmission Date: 20041129
  Serious: No
  Sender: FDA-Public Use
  Company Number: WAES0309USA00247

PATIENT
  Age: 72 Year
  Sex: Female
  Weight: 62.5964 kg

DRUGS (1)
  1. ZETIA [Suspect]
     Indication: HYPERLIPIDAEMIA
     Dosage: PO
     Route: 048
     Dates: start: 20031014, end: 20031029

REACTIONS (5)
  - ABDOMINAL DISCOMFORT [None]
  - BLOOD CREATINE PHOSPHOKINASE INCREASED [None]
  - BLOOD LACTATE DEHYDROGENASE INCREASED [None]
  - CHEST DISCOMFORT [None]
  - NAUSEA [None]
